FAERS Safety Report 17131241 (Version 2)
Quarter: 2024Q1

REPORT INFORMATION
  Report Type: Spontaneous
  Country: FR (occurrence: FR)
  Receive Date: 20191209
  Receipt Date: 20240307
  Transmission Date: 20240409
  Serious: Yes (Hospitalization, Other)
  Sender: FDA-Public Use
  Company Number: FR-CELLTRION INC.-2019FR027023

PATIENT

DRUGS (3)
  1. TRUXIMA [Suspect]
     Active Substance: RITUXIMAB-ABBS
     Indication: Lung disorder
     Dosage: 1 G, EVERY 6 MONTHS
     Route: 042
     Dates: start: 20191018, end: 20191018
  2. CANCIDAS [Concomitant]
     Active Substance: CASPOFUNGIN ACETATE
     Indication: Candida infection
     Dosage: 50 MILLIGRAM, EVERY 1 DAY
     Route: 042
     Dates: start: 20191001, end: 20191015
  3. ATOVAQUONE [Concomitant]
     Active Substance: ATOVAQUONE
     Indication: Pneumocystis jirovecii pneumonia
     Dosage: 2 DF, QD
     Route: 048
     Dates: start: 20190924

REACTIONS (2)
  - Toxic skin eruption [Recovered/Resolved]
  - Intentional product use issue [Unknown]

NARRATIVE: CASE EVENT DATE: 20191024
